FAERS Safety Report 4470460-9 (Version None)
Quarter: 2004Q4

REPORT INFORMATION
  Report Type: 
  Country: None (occurrence: None)
  Receive Date: 20041005
  Receipt Date: 20041005
  Transmission Date: 20050328
  Serious: Yes (Other)
  Sender: FDA-Public Use
  Company Number: None

PATIENT
  Age: 74 Year
  Sex: Female
  Weight: 77.1115 kg

DRUGS (11)
  1. WARFARIN SODIUM [Suspect]
     Indication: CEREBROVASCULAR ACCIDENT
     Dates: end: 19960101
  2. WARFARIN SODIUM [Suspect]
     Indication: CEREBROVASCULAR ACCIDENT
     Dates: end: 19960101
  3. AMITRIPTYLENE [Concomitant]
  4. VIOXX [Concomitant]
  5. COUMADIN [Concomitant]
  6. VICODIN [Concomitant]
  7. LIPITOR [Concomitant]
  8. CYCLOBENZOPRINE [Concomitant]
  9. NEURONTIN [Concomitant]
  10. PRILOSEC [Concomitant]
  11. WELLBUTRIN [Concomitant]

REACTIONS (2)
  - PHARMACEUTICAL PRODUCT COMPLAINT [None]
  - RASH [None]
